FAERS Safety Report 8186768-X (Version None)
Quarter: 2012Q1

REPORT INFORMATION
  Report Type: 
  Country: None (occurrence: None)
  Receive Date: 20120306
  Receipt Date: 20120306
  Transmission Date: 20120608
  Serious: Yes (Other)
  Sender: FDA-Public Use
  Company Number: None

PATIENT
  Age: 33 Year
  Sex: Female
  Weight: 73.028 kg

DRUGS (1)
  1. ORACEA [Suspect]
     Indication: ROSACEA
     Dosage: 40 MG -30 MG IMMEDIATE RELEASE
     Route: 048
     Dates: start: 20120223, end: 20120301

REACTIONS (7)
  - HEADACHE [None]
  - PHOTOPHOBIA [None]
  - VISION BLURRED [None]
  - MALAISE [None]
  - ASTHENOPIA [None]
  - NAUSEA [None]
  - VAGINAL HAEMORRHAGE [None]
